FAERS Safety Report 18751553 (Version 1)
Quarter: 2021Q1

REPORT INFORMATION
  Report Type: Spontaneous
  Country: PR (occurrence: PR)
  Receive Date: 20210118
  Receipt Date: 20210118
  Transmission Date: 20210419
  Serious: Yes (Other)
  Sender: FDA-Public Use
  Company Number: PR-ALLERGAN-2101949US

PATIENT
  Weight: 81.63 kg

DRUGS (9)
  1. HUMIRA [Suspect]
     Active Substance: ADALIMUMAB
     Indication: PRODUCT USED FOR UNKNOWN INDICATION
     Dosage: UNK
     Dates: start: 2018
  2. HUMIRA [Suspect]
     Active Substance: ADALIMUMAB
     Dosage: UNK
     Dates: start: 2006, end: 2018
  3. OMEGA?3 ACIDS [Concomitant]
     Active Substance: OMEGA-3 FATTY ACIDS
     Dosage: 1000 MG
     Route: 048
     Dates: start: 2014
  4. OFEV [Concomitant]
     Active Substance: NINTEDANIB
     Indication: PULMONARY FIBROSIS
     Dosage: 150 MG
     Route: 048
     Dates: start: 20200831
  5. PREFERVISION 2 [Concomitant]
     Indication: VISUAL IMPAIRMENT
  6. TIMOLOL UNK [Suspect]
     Active Substance: TIMOLOL
     Indication: PRODUCT USED FOR UNKNOWN INDICATION
     Dosage: UNK
     Dates: start: 202004, end: 202004
  7. METHOTREXATE. [Concomitant]
     Active Substance: METHOTREXATE
     Indication: UVEITIS
  8. REFRESH [Concomitant]
     Active Substance: UNSPECIFIED INGREDIENT
     Indication: DRY EYE
     Dosage: UNK
     Dates: start: 2014
  9. POLYMYXIN B. [Concomitant]
     Active Substance: POLYMYXIN B
     Dosage: UNK

REACTIONS (9)
  - Pruritus [Unknown]
  - Eye pain [Unknown]
  - Photophobia [Unknown]
  - Rash [Unknown]
  - Eye infection fungal [Unknown]
  - Urticaria [Unknown]
  - Intraocular pressure increased [Unknown]
  - Weight increased [Unknown]
  - Tracheal disorder [Unknown]

NARRATIVE: CASE EVENT DATE: 202004
